FAERS Safety Report 20576821 (Version 1)
Quarter: 2022Q1

REPORT INFORMATION
  Report Type: Report from Study
  Country: IE (occurrence: IE)
  Receive Date: 20220310
  Receipt Date: 20220310
  Transmission Date: 20220423
  Serious: Yes (Hospitalization, Congenital Anomaly, Other)
  Sender: FDA-Public Use
  Company Number: IE-AstraZeneca-2022A106385

PATIENT
  Age: 0 Year
  Sex: Male

DRUGS (7)
  1. SYNAGIS [Suspect]
     Active Substance: PALIVIZUMAB
     Indication: Premature baby
     Dosage: 15 MG/KG AFTER 28 DAYS
     Route: 030
     Dates: start: 20211019
  2. SYNAGIS [Suspect]
     Active Substance: PALIVIZUMAB
     Dosage: 15 MG/KG AFTER 28 DAYS
     Route: 030
     Dates: start: 20211116
  3. SYNAGIS [Suspect]
     Active Substance: PALIVIZUMAB
     Dosage: 15 MG/KG AFTER 28 DAYS
     Route: 030
     Dates: start: 20211214
  4. SYNAGIS [Suspect]
     Active Substance: PALIVIZUMAB
     Route: 030
     Dates: start: 20220111
  5. SYNAGIS [Suspect]
     Active Substance: PALIVIZUMAB
     Dosage: 15 MG/KG AFTER 28 DAYS
     Route: 030
     Dates: start: 20220208
  6. LACTULOSE [Concomitant]
     Active Substance: LACTULOSE
     Route: 050
  7. IRON [Concomitant]
     Active Substance: IRON
     Route: 050

REACTIONS (1)
  - Urachal abnormality [Recovered/Resolved]

NARRATIVE: CASE EVENT DATE: 20220115
